FAERS Safety Report 13887848 (Version 1)
Quarter: 2017Q3

REPORT INFORMATION
  Report Type: Spontaneous
  Country: US (occurrence: US)
  Receive Date: 20170821
  Receipt Date: 20170821
  Transmission Date: 20171127
  Serious: Yes (Hospitalization)
  Sender: FDA-Public Use
  Company Number: US-PFIZER INC-2017215175

PATIENT
  Age: 58 Year
  Sex: Female
  Weight: 58.97 kg

DRUGS (2)
  1. CHAPSTICK DUO [Suspect]
     Active Substance: PETROLATUM
     Indication: LIP DRY
     Dosage: UNK, SINGLE (ONLY APPLIED ONCE)
     Route: 061
     Dates: start: 20170511, end: 20170511
  2. CHAPSTICK DUO [Suspect]
     Active Substance: PETROLATUM
     Dosage: UNK, SINGLE (ONLY APPLIED ONCE)
     Route: 061
     Dates: start: 20170511, end: 20170511

REACTIONS (4)
  - Lip swelling [Recovered/Resolved]
  - Cheilitis [Recovered/Resolved]
  - Lip pruritus [Recovered/Resolved]
  - Oral discomfort [Recovered/Resolved]

NARRATIVE: CASE EVENT DATE: 20170511
